FAERS Safety Report 17418420 (Version 9)
Quarter: 2021Q2

REPORT INFORMATION
  Report Type: Report from Study
  Country: GB (occurrence: GB)
  Receive Date: 20200214
  Receipt Date: 20210607
  Transmission Date: 20210716
  Serious: Yes (Hospitalization, Other)
  Sender: FDA-Public Use
  Company Number: NVSC2019GB041395

PATIENT
  Age: 66 Year
  Sex: Male

DRUGS (3)
  1. SANDOSTATIN LAR DEPOT [Suspect]
     Active Substance: OCTREOTIDE ACETATE
     Indication: NEUROENDOCRINE TUMOUR
     Dosage: 20 MG, QMO (EVERY 4 WEEKS)
     Route: 030
  2. SANDOSTATIN LAR DEPOT [Suspect]
     Active Substance: OCTREOTIDE ACETATE
     Dosage: 30 MG, QMO
     Route: 065
     Dates: start: 20191022
  3. SANDOSTATIN LAR DEPOT [Suspect]
     Active Substance: OCTREOTIDE ACETATE
     Dosage: 30 MG, QMO (EVERY 4 WEEKS)
     Route: 030
     Dates: start: 20191101

REACTIONS (38)
  - Feeling drunk [Unknown]
  - Cough [Not Recovered/Not Resolved]
  - Body temperature fluctuation [Unknown]
  - Abdominal pain [Recovering/Resolving]
  - Constipation [Recovering/Resolving]
  - Metastases to liver [Unknown]
  - Mass [Unknown]
  - Diarrhoea [Unknown]
  - Neuroendocrine tumour [Unknown]
  - Fluid retention [Unknown]
  - Glassy eyes [Unknown]
  - Dizziness [Unknown]
  - Malignant neoplasm progression [Unknown]
  - Pain in extremity [Not Recovered/Not Resolved]
  - Arthralgia [Unknown]
  - Neoplasm [Unknown]
  - Chills [Unknown]
  - Weight increased [Unknown]
  - Intestinal obstruction [Recovered/Resolved]
  - Abdominal pain upper [Unknown]
  - Syncope [Unknown]
  - Eyelid tumour [Unknown]
  - Hyperhidrosis [Unknown]
  - Palpitations [Unknown]
  - Thyroid disorder [Unknown]
  - Magnetic resonance imaging head abnormal [Unknown]
  - Neck pain [Not Recovered/Not Resolved]
  - Tremor [Unknown]
  - Pyrexia [Unknown]
  - Nervousness [Unknown]
  - Metastases to spine [Unknown]
  - Cold sweat [Unknown]
  - Vision blurred [Unknown]
  - Headache [Not Recovered/Not Resolved]
  - Feeling abnormal [Unknown]
  - Liver disorder [Unknown]
  - Abdominal distension [Unknown]
  - Blood glucose abnormal [Unknown]

NARRATIVE: CASE EVENT DATE: 20201027
